FAERS Safety Report 8584288 (Version 3)
Quarter: 2012Q4

REPORT INFORMATION
  Report Type: 
  Country: US (occurrence: US)
  Receive Date: 20120529
  Receipt Date: 20121217
  Transmission Date: 20130627
  Serious: Yes (Other)
  Sender: FDA-Public Use
  Company Number: US-PFIZER INC-2012123998

PATIENT
  Age: 55 Year
  Sex: Female

DRUGS (13)
  1. NEURONTIN [Suspect]
     Dosage: 300 mg, UNK
     Route: 048
  2. LYRICA [Suspect]
     Dosage: 75 mg, 3x/day
     Route: 048
  3. IBUPROFEN [Concomitant]
     Dosage: 800 mg, UNK
     Route: 048
  4. TRAMADOL [Concomitant]
     Dosage: 50 mg, UNK
     Route: 048
  5. PROZAC [Concomitant]
     Dosage: 40 mg, UNK
     Route: 048
  6. FLEXERIL [Concomitant]
     Dosage: 10 mg, UNK
     Route: 048
  7. LORTAB [Concomitant]
     Dosage: 7.5/500 mg, UNK
     Route: 048
  8. PERCOCET [Concomitant]
     Dosage: 10-325 mg
     Route: 048
  9. MELOXICAM [Concomitant]
     Dosage: 7.5 mg, UNK
     Route: 048
  10. TRAZODONE HYDROCHLORIDE [Concomitant]
     Dosage: 50 mg, UNK
     Route: 048
  11. MAXALT [Concomitant]
     Dosage: 10 mg, UNK
     Route: 048
  12. ESTRADIOL [Concomitant]
     Dosage: 2 mg, UNK
     Route: 048
  13. ROBAXIN [Concomitant]
     Dosage: 500 mg, UNK
     Route: 048

REACTIONS (10)
  - Intervertebral disc displacement [Unknown]
  - Insomnia [Unknown]
  - Depression [Unknown]
  - Rhinitis allergic [Unknown]
  - Hormone replacement therapy [Unknown]
  - Fibromyalgia [Unknown]
  - Myalgia [Unknown]
  - Migraine [Unknown]
  - Pyrexia [Unknown]
  - Hypertension [Unknown]
